FAERS Safety Report 17789709 (Version 1)
Quarter: 2020Q2

REPORT INFORMATION
  Report Type: Other
  Country: US (occurrence: US)
  Receive Date: 20200515
  Receipt Date: 20200515
  Transmission Date: 20200714
  Serious: Yes (Death, Hospitalization, Other)
  Sender: FDA-Public Use
  Company Number: US-VISTA PHARMACEUTICALS INC.-2083807

PATIENT
  Age: 58 Year
  Sex: Male

DRUGS (2)
  1. SULFAMETHOXAZOLE AND TRIMETHOPRIM [Suspect]
     Active Substance: SULFAMETHOXAZOLE\TRIMETHOPRIM
     Indication: ANTIFUNGAL PROPHYLAXIS
     Route: 065
  2. DAPSONE. [Suspect]
     Active Substance: DAPSONE
     Route: 065

REACTIONS (9)
  - Cholestasis [Unknown]
  - Vanishing bile duct syndrome [Unknown]
  - General physical health deterioration [Unknown]
  - Pancreatic atrophy [Unknown]
  - Therapeutic product cross-reactivity [Unknown]
  - Hepatotoxicity [Unknown]
  - Hepatorenal syndrome [Fatal]
  - Drug-induced liver injury [Unknown]
  - Gastrointestinal disorder [Unknown]
